FAERS Safety Report 6284123-0 (Version None)
Quarter: 2009Q3

REPORT INFORMATION
  Report Type: 
  Country: None (occurrence: None)
  Receive Date: 20090722
  Receipt Date: 20090707
  Transmission Date: 20100115
  Serious: Yes (Death, Other)
  Sender: FDA-Public Use
  Company Number: 2009-02791

PATIENT
  Age: 66 Year
  Sex: Male
  Weight: 60 kg

DRUGS (5)
  1. VELCADE [Suspect]
     Indication: MULTIPLE MYELOMA
     Dosage: 2 MG, INTRAVENOUS; 1.6 MG, INTRAVENOUS
     Route: 042
     Dates: start: 20071009
  2. VELCADE [Suspect]
     Indication: MULTIPLE MYELOMA
     Dosage: 2 MG, INTRAVENOUS; 1.6 MG, INTRAVENOUS
     Route: 042
     Dates: start: 20071211
  3. DEXAMETHASONE(DEXAMETHASONE) EXTERNAL USE [Suspect]
     Indication: MULTIPLE MYELOMA
     Dosage: 8 MG, INTRAVENOUS
     Route: 042
     Dates: start: 20071009, end: 20071222
  4. TIENAM (IMIPENEM, CILASTATIN) INJECTION [Concomitant]
  5. FLUCONAZOLE [Concomitant]

REACTIONS (14)
  - ALANINE AMINOTRANSFERASE INCREASED [None]
  - ASPARTATE AMINOTRANSFERASE INCREASED [None]
  - DIZZINESS [None]
  - FATIGUE [None]
  - HAEMOGLOBIN DECREASED [None]
  - LOBAR PNEUMONIA [None]
  - MALIGNANT NEOPLASM PROGRESSION [None]
  - MULTIPLE MYELOMA [None]
  - OTITIS MEDIA [None]
  - PAIN IN EXTREMITY [None]
  - PLATELET COUNT DECREASED [None]
  - PNEUMONIA [None]
  - RASH ERYTHEMATOUS [None]
  - WHITE BLOOD CELL COUNT DECREASED [None]
